FAERS Safety Report 6627797-4 (Version None)
Quarter: 2010Q1

REPORT INFORMATION
  Report Type: 
  Country: None (occurrence: None)
  Receive Date: 20100311
  Receipt Date: 20100302
  Transmission Date: 20100710
  Serious: Yes (Hospitalization)
  Sender: FDA-Public Use
  Company Number: US-ASTRAZENECA-2010SE08974

PATIENT
  Age: 83 Year
  Sex: Female
  Weight: 66.7 kg

DRUGS (5)
  1. PRILOSEC [Suspect]
     Route: 048
  2. PLAVIX [Suspect]
     Indication: STENT PLACEMENT
     Route: 048
     Dates: start: 20090401
  3. VITAMINS [Concomitant]
     Indication: EYE DISORDER
  4. DIOVAN [Concomitant]
  5. CALCIUM [Concomitant]

REACTIONS (3)
  - BLOOD PRESSURE INCREASED [None]
  - HEART RATE IRREGULAR [None]
  - NERVOUSNESS [None]
